FAERS Safety Report 10624881 (Version 2)
Quarter: 2014Q4

REPORT INFORMATION
  Report Type: Spontaneous
  Country: GB (occurrence: GB)
  Receive Date: 20141204
  Receipt Date: 20141211
  Transmission Date: 20150529
  Serious: Yes (Other)
  Sender: FDA-Public Use
  Company Number: GB-ROCHE-1501226

PATIENT
  Sex: Female

DRUGS (1)
  1. RIVOTRIL [Suspect]
     Active Substance: CLONAZEPAM
     Indication: EYE MOVEMENT DISORDER
     Route: 065

REACTIONS (6)
  - Poor quality sleep [Unknown]
  - Haemorrhage [Unknown]
  - Laceration [Unknown]
  - Loss of consciousness [Unknown]
  - Anxiety [Unknown]
  - Anger [Unknown]
